FAERS Safety Report 12934427 (Version 1)
Quarter: 2016Q4

REPORT INFORMATION
  Report Type: Report from Study
  Country: None (occurrence: BR)
  Receive Date: 20161111
  Receipt Date: 20161111
  Transmission Date: 20170207
  Serious: Yes (Other)
  Sender: FDA-Public Use
  Company Number: BR-ABBVIE-16P-020-1773454-00

PATIENT
  Sex: Female

DRUGS (2)
  1. HUMIRA [Suspect]
     Active Substance: ADALIMUMAB
     Route: 058
     Dates: start: 2016
  2. HUMIRA [Suspect]
     Active Substance: ADALIMUMAB
     Indication: ANKYLOSING SPONDYLITIS
     Route: 058
     Dates: start: 20151001, end: 2016

REACTIONS (13)
  - Influenza [Unknown]
  - Finger deformity [Unknown]
  - Malaise [Unknown]
  - Pharyngitis [Unknown]
  - Rhinitis [Unknown]
  - Back pain [Unknown]
  - Overweight [Unknown]
  - Pain [Unknown]
  - Flavivirus infection [Unknown]
  - Osteoarthritis [Unknown]
  - Arthralgia [Unknown]
  - Mental disorder [Recovering/Resolving]
  - Drug ineffective [Unknown]

NARRATIVE: CASE EVENT DATE: 2016
